FAERS Safety Report 22277490 (Version 1)
Quarter: 2023Q2

REPORT INFORMATION
  Report Type: Spontaneous
  Country: ES (occurrence: ES)
  Receive Date: 20230503
  Receipt Date: 20230503
  Transmission Date: 20230722
  Serious: Yes (Life-Threatening, Other)
  Sender: FDA-Public Use
  Company Number: ES-AEMPS-1355374

PATIENT
  Age: 58 Year
  Sex: Male

DRUGS (6)
  1. CIPROFLOXACIN [Interacting]
     Active Substance: CIPROFLOXACIN
     Indication: Product used for unknown indication
     Dosage: 500 MILLIGRAM, ONCE A DAY
     Route: 065
  2. POSACONAZOLE [Interacting]
     Active Substance: POSACONAZOLE
     Indication: Product used for unknown indication
     Dosage: 300 MILLIGRAM, ONCE A DAY
     Route: 065
  3. RYDAPT [Interacting]
     Active Substance: MIDOSTAURIN
     Indication: Product used for unknown indication
     Dosage: 50 MILLIGRAM, TWO TIMES A DAY
     Route: 048
     Dates: start: 20230404
  4. OMEPRAZOLE [Concomitant]
     Active Substance: OMEPRAZOLE
     Indication: Product used for unknown indication
     Dosage: 20 MILLIGRAM, ONCE A DAY
     Route: 065
  5. AMLODIPINE BESYLATE [Concomitant]
     Active Substance: AMLODIPINE BESYLATE
     Indication: Product used for unknown indication
     Dosage: 5 MILLIGRAM, ONCE A DAY
     Route: 065
  6. BRINTELLIX [Concomitant]
     Active Substance: VORTIOXETINE HYDROBROMIDE
     Indication: Product used for unknown indication
     Dosage: 10 MILLIGRAM, ONCE A DAY
     Route: 065

REACTIONS (1)
  - Long QT syndrome [Recovering/Resolving]

NARRATIVE: CASE EVENT DATE: 20230406
